FAERS Safety Report 20673155 (Version 1)
Quarter: 2022Q2

REPORT INFORMATION
  Report Type: Spontaneous
  Country: US (occurrence: None)
  Receive Date: 20220403
  Receipt Date: 20220403
  Transmission Date: 20220721
  Serious: Yes (Hospitalization)
  Sender: FDA-Public Use
  Company Number: None

PATIENT
  Age: 68 Year
  Sex: Male

DRUGS (1)
  1. CYTARABINE [Suspect]
     Active Substance: CYTARABINE
     Indication: Mantle cell lymphoma
     Dosage: 4000 MG BID IV?
     Route: 042
     Dates: start: 20211211, end: 20211212

REACTIONS (14)
  - Febrile neutropenia [None]
  - Tachycardia [None]
  - Pneumonia [None]
  - Lung opacity [None]
  - Mucosal inflammation [None]
  - Bacterial translocation [None]
  - Pneumonia cryptococcal [None]
  - Candida infection [None]
  - Oral pain [None]
  - Herpes simplex [None]
  - Candida infection [None]
  - Fungal infection [None]
  - Anaemia [None]
  - Platelet count decreased [None]

NARRATIVE: CASE EVENT DATE: 20220113
